FAERS Safety Report 11397174 (Version 7)
Quarter: 2016Q3

REPORT INFORMATION
  Report Type: Spontaneous
  Country: US (occurrence: US)
  Receive Date: 20150819
  Receipt Date: 20160808
  Transmission Date: 20161109
  Serious: Yes (Hospitalization, Congenital Anomaly, Other)
  Sender: FDA-Public Use
  Company Number: US-ELI_LILLY_AND_COMPANY-US201508004850

PATIENT
  Age: 7 Month

DRUGS (9)
  1. ALDOMET [Concomitant]
     Active Substance: METHYLDOPA
     Indication: HYPERTENSION
     Dosage: UNK UNK, UNKNOWN
     Route: 015
  2. AMPICILLIN [Concomitant]
     Active Substance: AMPICILLIN
     Indication: PRODUCT USED FOR UNKNOWN INDICATION
     Dosage: UNK
     Route: 065
  3. INSULIN [Concomitant]
     Active Substance: INSULIN NOS
     Indication: PRODUCT USED FOR UNKNOWN INDICATION
     Dosage: UNK UNK, UNKNOWN
     Route: 064
  4. SUCROSE [Concomitant]
     Active Substance: SUCROSE
     Indication: PAIN
     Dosage: UNK, UNKNOWN
     Route: 065
  5. VERSED [Concomitant]
     Active Substance: MIDAZOLAM HYDROCHLORIDE
     Indication: SEDATION
     Dosage: UNK, UNKNOWN
     Route: 065
  6. MAGNEVIST [Concomitant]
     Active Substance: GADOPENTETATE DIMEGLUMINE
     Indication: PRODUCT USED FOR UNKNOWN INDICATION
     Dosage: UNK, UNKNOWN
     Route: 065
  7. PROZAC [Suspect]
     Active Substance: FLUOXETINE HYDROCHLORIDE
     Indication: DEPRESSION
     Dosage: UNK
     Route: 064
     Dates: start: 2009, end: 2014
  8. GENTAMICIN. [Concomitant]
     Active Substance: GENTAMICIN
     Indication: PRODUCT USED FOR UNKNOWN INDICATION
     Dosage: UNK, UNKNOWN
     Route: 065
  9. ZINC OXIDE. [Concomitant]
     Active Substance: ZINC OXIDE
     Indication: IRRITABILITY
     Dosage: UNK, UNKNOWN
     Route: 065

REACTIONS (15)
  - Foetal hypokinesia [Unknown]
  - Atrial septal defect [Recovered/Resolved]
  - Mitral valve incompetence [Recovered/Resolved]
  - Cerebral haemorrhage neonatal [Unknown]
  - Coarctation of the aorta [Recovered/Resolved]
  - Respiratory distress [Recovered/Resolved]
  - Cardiomyopathy [Recovered/Resolved]
  - Selective eating disorder [Recovered/Resolved]
  - Foetal exposure during pregnancy [Recovered/Resolved]
  - Pulmonary artery stenosis [Recovered/Resolved]
  - Cystic fibrosis [Unknown]
  - Cardiac murmur functional [Unknown]
  - Patent ductus arteriosus [Recovered/Resolved]
  - Ventricular hypertrophy [Recovered/Resolved]
  - Meconium in amniotic fluid [Recovered/Resolved]

NARRATIVE: CASE EVENT DATE: 20150511
